FAERS Safety Report 6760953-3 (Version None)
Quarter: 2010Q2

REPORT INFORMATION
  Report Type: 
  Country: None (occurrence: None)
  Receive Date: 20100608
  Receipt Date: 20100602
  Transmission Date: 20101027
  Serious: Yes (Death)
  Sender: FDA-Public Use
  Company Number: JP-ELI_LILLY_AND_COMPANY-JP201006001203

PATIENT
  Age: 65 Year
  Sex: Female

DRUGS (2)
  1. GEMZAR [Suspect]
     Indication: PANCREATIC CARCINOMA STAGE IV
     Dosage: 250 MG/M2, OTHER
     Route: 042
  2. GEMZAR [Suspect]
     Dosage: 1000 MG/M2, OTHER
     Route: 042

REACTIONS (2)
  - MALIGNANT ASCITES [None]
  - METASTASES TO LUNG [None]
